FAERS Safety Report 20436432 (Version 4)
Quarter: 2023Q2

REPORT INFORMATION
  Report Type: Spontaneous
  Country: CA (occurrence: CA)
  Receive Date: 20220207
  Receipt Date: 20230424
  Transmission Date: 20230721
  Serious: Yes (Hospitalization, Other)
  Sender: FDA-Public Use
  Company Number: CA-AUROBINDO-AUR-APL-2022-002923

PATIENT
  Age: 81 Year
  Sex: Male

DRUGS (2)
  1. CLOPIDOGREL [Interacting]
     Active Substance: CLOPIDOGREL BISULFATE
     Indication: Antiplatelet therapy
     Dosage: 75 MILLIGRAM, ONCE A DAY
     Route: 065
  2. ASPIRIN [Interacting]
     Active Substance: ASPIRIN
     Indication: Antiplatelet therapy
     Dosage: 81 MILLIGRAM, ONCE A DAY
     Route: 065

REACTIONS (3)
  - Haemorrhagic cholecystitis [Recovered/Resolved]
  - Abdominal pain upper [Recovered/Resolved]
  - Labelled drug-drug interaction medication error [Unknown]
